FAERS Safety Report 6568665-6 (Version None)
Quarter: 2010Q1

REPORT INFORMATION
  Report Type: 
  Country: None (occurrence: None)
  Receive Date: 20100203
  Receipt Date: 20100122
  Transmission Date: 20100710
  Serious: Yes (Other)
  Sender: FDA-Public Use
  Company Number: PHHY2009CA25966

PATIENT
  Sex: Female

DRUGS (1)
  1. SANDOSTATIN LAR [Suspect]
     Indication: ACROMEGALY
     Dosage: 20 MG, QMO
     Route: 030
     Dates: start: 20090619, end: 20090701

REACTIONS (8)
  - ABDOMINAL DISCOMFORT [None]
  - ABDOMINAL DISTENSION [None]
  - ABDOMINAL PAIN [None]
  - CARDIOVASCULAR DISORDER [None]
  - DIARRHOEA [None]
  - FAECES PALE [None]
  - HEADACHE [None]
  - WEIGHT DECREASED [None]
